FAERS Safety Report 7321756-4 (Version None)
Quarter: 2011Q1

REPORT INFORMATION
  Report Type: 
  Country: None (occurrence: None)
  Receive Date: 20110228
  Receipt Date: 20110222
  Transmission Date: 20110831
  Serious: Yes (Death, Other)
  Sender: FDA-Public Use
  Company Number: JP-PFIZER INC-2011026535

PATIENT
  Age: 66 Year
  Sex: Male

DRUGS (3)
  1. LYRICA [Suspect]
     Indication: LYMPHOMA
     Dosage: UNK
     Route: 048
     Dates: start: 20110204, end: 20110206
  2. LAMIVUDINE [Concomitant]
     Dosage: UNK
     Route: 048
     Dates: end: 20110207
  3. LYRICA [Suspect]
     Indication: NEURALGIA

REACTIONS (3)
  - LARYNGEAL CANCER [None]
  - DISEASE PROGRESSION [None]
  - LOSS OF CONSCIOUSNESS [None]
